FAERS Safety Report 6096860-1 (Version None)
Quarter: 2009Q1

REPORT INFORMATION
  Report Type: 
  Country: None (occurrence: None)
  Receive Date: 20090225
  Receipt Date: 20090225
  Transmission Date: 20090719
  Serious: Yes (Hospitalization)
  Sender: FDA-Public Use
  Company Number: None

PATIENT
  Sex: Female
  Weight: 88.89 kg

DRUGS (19)
  1. CISPLATIN [Suspect]
     Dosage: 94 MG
  2. DOXORUBICIN HYDROCHLORIDE [Suspect]
     Dosage: 85 MG
  3. TAXOL [Suspect]
     Dosage: 300 MG
  4. NEULASTA [Suspect]
     Dosage: 6 MG
  5. ALLEGRA [Concomitant]
  6. ASPIRIN [Concomitant]
  7. ASTELIN [Concomitant]
  8. CALCIUM WITH VITAMIN D [Concomitant]
  9. HYDROCHLOROTHIAZIDE [Concomitant]
  10. LEXAPRO [Concomitant]
  11. LOVENOX [Concomitant]
  12. PATANOL [Concomitant]
  13. PROTONIX [Concomitant]
  14. SYNTHROID [Concomitant]
  15. VASOTEC [Concomitant]
  16. ZOFRAN [Concomitant]
  17. AMBIEN [Concomitant]
  18. LUMIGAN [Concomitant]
  19. MULTI-VITAMIN [Concomitant]

REACTIONS (3)
  - HYPERTENSION [None]
  - MUSCLE SPASMS [None]
  - PULMONARY EMBOLISM [None]
